FAERS Safety Report 5996663-X (Version None)
Quarter: 2008Q4

REPORT INFORMATION
  Report Type: 
  Country: None (occurrence: None)
  Receive Date: 20081212
  Receipt Date: 20081204
  Transmission Date: 20090506
  Serious: Yes (Death, Hospitalization)
  Sender: FDA-Public Use
  Company Number: FR-GENENTECH-272910

PATIENT
  Sex: Male
  Weight: 50 kg

DRUGS (13)
  1. RITUXAN [Suspect]
     Indication: DIFFUSE LARGE B-CELL LYMPHOMA
     Dosage: 375 MG/M2, Q2W
     Route: 042
     Dates: start: 20080620
  2. ENZASTAURIN [Suspect]
     Indication: DIFFUSE LARGE B-CELL LYMPHOMA
     Dosage: 4 TABLET, QD
     Route: 048
     Dates: start: 20080620
  3. GEMCITABINE HCL [Suspect]
     Indication: DIFFUSE LARGE B-CELL LYMPHOMA
     Dosage: 1000 MG/M2, Q2W
     Route: 042
     Dates: start: 20080620
  4. OXALIPLATIN [Suspect]
     Indication: DIFFUSE LARGE B-CELL LYMPHOMA
     Dosage: 100 MG/M2, Q2W
     Route: 042
     Dates: start: 20080620
  5. ZENTEL [Concomitant]
     Indication: DRUG USE FOR UNKNOWN INDICATION
     Dosage: UNK
     Dates: start: 20080530
  6. BACTRIM [Concomitant]
     Indication: DRUG USE FOR UNKNOWN INDICATION
     Dosage: UNK
     Dates: start: 20080530
  7. MOPRAL [Concomitant]
     Indication: DRUG USE FOR UNKNOWN INDICATION
     Dosage: UNK
     Dates: start: 20080530
  8. INIPOMP [Concomitant]
     Indication: DRUG USE FOR UNKNOWN INDICATION
     Dosage: UNK
     Dates: start: 20080826
  9. LYRICA [Concomitant]
     Indication: HERPES ZOSTER
     Dosage: UNK
     Dates: start: 20080704
  10. TERALITHE [Concomitant]
     Indication: BIPOLAR DISORDER
  11. TRIFLUCAN [Concomitant]
     Indication: DRUG USE FOR UNKNOWN INDICATION
  12. CLINOMEL [Concomitant]
     Indication: MALNUTRITION
  13. PRIMPERAN TAB [Concomitant]
     Indication: PROPHYLAXIS

REACTIONS (1)
  - CEREBROVASCULAR DISORDER [None]
